FAERS Safety Report 18194923 (Version 1)
Quarter: 2020Q3

REPORT INFORMATION
  Report Type: Report from Study
  Country: CA (occurrence: CA)
  Receive Date: 20200825
  Receipt Date: 20200825
  Transmission Date: 20201103
  Serious: Yes (Life-Threatening, Hospitalization, Other)
  Sender: FDA-Public Use
  Company Number: CA-MYLANLABS-2020M1066058

PATIENT
  Age: 56 Year
  Sex: Male
  Weight: 93.8 kg

DRUGS (19)
  1. CLOZAPINE. [Suspect]
     Active Substance: CLOZAPINE
     Dosage: 125 MG, QHS
  2. QUETIAPINE. [Concomitant]
     Active Substance: QUETIAPINE
     Dosage: 600 MG, QHS
  3. EPIVAL                             /00017001/ [Concomitant]
     Active Substance: DIAZEPAM
     Dosage: 250 MG QAM
  4. EPIVAL                             /00017001/ [Concomitant]
     Active Substance: DIAZEPAM
     Dosage: 2000 MG, QHS
  5. LINAGLIPTIN [Concomitant]
     Active Substance: LINAGLIPTIN
     Dosage: 5 MG QAM
  6. PANTOPRAZOLE [Concomitant]
     Active Substance: PANTOPRAZOLE
     Dosage: 40 MG, DAILY
  7. GAVISCON                           /00237601/ [Concomitant]
     Active Substance: ALUMINUM HYDROXIDE\MAGNESIUM CARBONATE
     Dosage: 20 MILLILITER, TID
  8. LEVOTHYROXINE. [Concomitant]
     Active Substance: LEVOTHYROXINE
     Dosage: 125 MCG QAM
  9. VENTOLIN [Concomitant]
     Active Substance: ALBUTEROL SULFATE
     Dosage: UNK, PRN
  10. CLOZAPINE. [Suspect]
     Active Substance: CLOZAPINE
     Indication: PRODUCT USED FOR UNKNOWN INDICATION
     Dosage: UNK
     Dates: start: 20200601
  11. SPIRIVA RESPIMAT [Concomitant]
     Active Substance: TIOTROPIUM BROMIDE
     Dosage: 2.5 MCG 2 INHALATIONS QHS
  12. IBUPROFEN. [Concomitant]
     Active Substance: IBUPROFEN
     Dosage: 600 MILLIGRAM, PRN
  13. CLOZAPINE. [Suspect]
     Active Substance: CLOZAPINE
     Dosage: UNK
     Dates: start: 20200602, end: 20200624
  14. CELEBREX [Concomitant]
     Active Substance: CELECOXIB
     Dosage: 100 MILLIGRAM, BID
  15. MULTIVITAMIN                       /00097801/ [Concomitant]
     Active Substance: VITAMINS
     Dosage: DAILY
  16. INVEGA SUSTENNA [Concomitant]
     Active Substance: PALIPERIDONE PALMITATE
     Dosage: 150 MG Q4WEEKS
     Route: 030
  17. RAMIPRIL. [Concomitant]
     Active Substance: RAMIPRIL
     Dosage: 10 MG Q EVENING
  18. ZOPICLONE [Concomitant]
     Active Substance: ZOPICLONE
     Dosage: 15 MG QHS
  19. ACETAMINOPHEN. [Concomitant]
     Active Substance: ACETAMINOPHEN
     Dosage: 650 MILLIGRAM, PRN

REACTIONS (13)
  - Febrile infection [Unknown]
  - Septic shock [Unknown]
  - Vomiting [Unknown]
  - Diarrhoea [Unknown]
  - Schizoaffective disorder [Unknown]
  - Dyspnoea [Unknown]
  - Pneumococcal sepsis [Unknown]
  - Pyrexia [Unknown]
  - Atrial fibrillation [Unknown]
  - Acute kidney injury [Unknown]
  - Hypotension [Unknown]
  - Mania [Unknown]
  - Myocarditis [Unknown]

NARRATIVE: CASE EVENT DATE: 202006
